FAERS Safety Report 25082738 (Version 2)
Quarter: 2025Q4

REPORT INFORMATION
  Report Type: Spontaneous
  Country: JP (occurrence: JP)
  Receive Date: 20250317
  Receipt Date: 20251005
  Transmission Date: 20260118
  Serious: Yes (Death, Other)
  Sender: GENMAB
  Company Number: JP-GENMAB-2025-00641

PATIENT
  Age: 78 Year
  Sex: Male

DRUGS (2)
  1. EPKINLY [Suspect]
     Active Substance: EPCORITAMAB-BYSP
     Indication: Diffuse large B-cell lymphoma refractory
     Dosage: 0.16 MILLIGRAM, SINGLE, UP TO CYCLE1DAY1 (THE NUMBER OF DOSES: 1)
     Route: 058
     Dates: start: 20240626, end: 20240626
  2. DEXAMETHASONE [Concomitant]
     Active Substance: DEXAMETHASONE
     Indication: Prophylaxis
     Dosage: 12 MILLIGRAM, FOR FOUR DAYS
     Dates: start: 202406, end: 202406

REACTIONS (1)
  - Diffuse large B-cell lymphoma refractory [Fatal]
